FAERS Safety Report 8924902 (Version 2)
Quarter: 2012Q4

REPORT INFORMATION
  Report Type: 
  Country: US (occurrence: US)
  Receive Date: 20121126
  Receipt Date: 20121209
  Transmission Date: 20130627
  Serious: No
  Sender: FDA-Public Use
  Company Number: US-009507513-1211USA002359

PATIENT

DRUGS (5)
  1. ZEGERID OTC CAPSULES [Suspect]
     Indication: PRODUCT USED FOR UNKNOWN INDICATION
     Dosage: 1 DF, qam
     Route: 048
     Dates: start: 201210, end: 2012
  2. ZEGERID OTC CAPSULES [Suspect]
     Dosage: UNK, Unknown
     Route: 048
     Dates: start: 2012
  3. LASIX (FUROSEMIDE SODIUM) [Concomitant]
     Indication: PRODUCT USED FOR UNKNOWN INDICATION
     Dosage: UNK, qd
  4. HYDROCHLOROTHIAZIDE [Concomitant]
     Indication: PRODUCT USED FOR UNKNOWN INDICATION
     Dosage: UNK, qd
  5. SYNTHROID [Concomitant]
     Indication: THYROID DISORDER

REACTIONS (3)
  - Blood pressure increased [Unknown]
  - Oedema peripheral [Recovered/Resolved]
  - Joint swelling [Recovered/Resolved]
